FAERS Safety Report 5213475-5 (Version None)
Quarter: 2007Q1

REPORT INFORMATION
  Report Type: 
  Country: None (occurrence: None)
  Receive Date: 20070119
  Receipt Date: 20070109
  Transmission Date: 20070707
  Serious: Yes (Hospitalization)
  Sender: FDA-Public Use
  Company Number: US-ELI_LILLY_AND_COMPANY-US200701001653

PATIENT
  Sex: Female

DRUGS (3)
  1. FORTEO [Suspect]
     Indication: OSTEOPOROSIS
     Dosage: UNK, UNK
     Dates: start: 20060805, end: 20061201
  2. FORTEO [Suspect]
     Dates: start: 20061201
  3. HYDROCODONE [Concomitant]
     Indication: ARTHRALGIA
     Dosage: UNK, AS NEEDED

REACTIONS (4)
  - ARTHRALGIA [None]
  - HIP FRACTURE [None]
  - OEDEMA PERIPHERAL [None]
  - PROCEDURAL PAIN [None]
